FAERS Safety Report 17469263 (Version 1)
Quarter: 2020Q1

REPORT INFORMATION
  Report Type: Spontaneous
  Country: JP (occurrence: JP)
  Receive Date: 20200227
  Receipt Date: 20200227
  Transmission Date: 20200409
  Serious: Yes (Other)
  Sender: FDA-Public Use
  Company Number: JP-ASTRAZENECA-2019SE84511

PATIENT
  Age: 47 Year
  Sex: Female

DRUGS (4)
  1. EMEND [Concomitant]
     Active Substance: APREPITANT
  2. LYNPARZA [Suspect]
     Active Substance: OLAPARIB
     Indication: OVARIAN CANCER
     Route: 048
     Dates: start: 20190108, end: 20190618
  3. NAUZELIN [Concomitant]
     Active Substance: DOMPERIDONE
     Dates: start: 20190109
  4. PRIMPERAN [Concomitant]
     Active Substance: METOCLOPRAMIDE HYDROCHLORIDE
     Dates: start: 20190109

REACTIONS (2)
  - Malignant neoplasm progression [Unknown]
  - Nausea [Unknown]

NARRATIVE: CASE EVENT DATE: 20190109
